FAERS Safety Report 6870079-6 (Version None)
Quarter: 2010Q3

REPORT INFORMATION
  Report Type: 
  Country: None (occurrence: None)
  Receive Date: 20100722
  Receipt Date: 20100714
  Transmission Date: 20110219
  Serious: Yes (Other)
  Sender: FDA-Public Use
  Company Number: AU-PFIZER INC-2010073002

PATIENT
  Age: 50 Year
  Sex: Female
  Weight: 59 kg

DRUGS (5)
  1. CADUET [Suspect]
     Indication: HYPERTENSION
     Dosage: 5 MG/20 MG 1X/DAY
     Route: 048
  2. CADUET [Suspect]
     Indication: HYPERLIPIDAEMIA
  3. CALTRATE [Concomitant]
     Dosage: 1500 MG, 2X/DAY
     Route: 048
  4. VITAMIN D [Concomitant]
     Dosage: 1000 IU, 3X/DAY
     Route: 048
  5. SLOW-K [Concomitant]
     Indication: HYPOKALAEMIA
     Dosage: SIX PER DAY
     Route: 048

REACTIONS (2)
  - BLOOD POTASSIUM DECREASED [None]
  - BLOOD PRESSURE INCREASED [None]
